FAERS Safety Report 6897774-7 (Version None)
Quarter: 2010Q3

REPORT INFORMATION
  Report Type: 
  Country: None (occurrence: None)
  Receive Date: 20100802
  Receipt Date: 20070707
  Transmission Date: 20110219
  Serious: No
  Sender: FDA-Public Use
  Company Number: US-PFIZER INC-2007056075

PATIENT
  Sex: Female
  Weight: 49 kg

DRUGS (7)
  1. LYRICA [Suspect]
     Indication: LIMB DISCOMFORT
     Dates: start: 20070706
  2. LOPERAMIDE HYDROCHLORIDE [Concomitant]
  3. REMICADE [Concomitant]
  4. CALCIUM [Concomitant]
  5. FOLIC ACID [Concomitant]
  6. VITAMIN B6 [Concomitant]
  7. CRESTOR [Concomitant]

REACTIONS (1)
  - DIZZINESS [None]
